FAERS Safety Report 5929451-0 (Version None)
Quarter: 2008Q4

REPORT INFORMATION
  Report Type: 
  Country: None (occurrence: None)
  Receive Date: 20081024
  Receipt Date: 20081014
  Transmission Date: 20090506
  Serious: Yes (Hospitalization, Disabling)
  Sender: FDA-Public Use
  Company Number: JP-ELI_LILLY_AND_COMPANY-JP200810005070

PATIENT
  Age: 16 Year
  Sex: Male

DRUGS (3)
  1. HUMALOG [Suspect]
     Indication: TYPE 1 DIABETES MELLITUS
     Dosage: 0.7-0.8 IU/HOUR (BASAL)
     Route: 058
  2. HUMALOG [Suspect]
     Dosage: ABOUT 7 IU (BORUS)
     Route: 058
  3. HUMALOG [Suspect]
     Dosage: 8 IU, BORUS
     Route: 058

REACTIONS (4)
  - HYPOGLYCAEMIA [None]
  - OVERDOSE [None]
  - RHABDOMYOLYSIS [None]
  - STATUS EPILEPTICUS [None]
